FAERS Safety Report 9026058 (Version 1)
Quarter: 2013Q1

REPORT INFORMATION
  Report Type: Report from Study
  Country: US (occurrence: US)
  Receive Date: 20130122
  Receipt Date: 20130122
  Transmission Date: 20140127
  Serious: Yes (Hospitalization, Other)
  Sender: FDA-Public Use
  Company Number: US-ROCHE-1178704

PATIENT
  Age: 79 Year
  Sex: Female
  Weight: 102.5 kg

DRUGS (4)
  1. BEVACIZUMAB [Suspect]
     Indication: COLORECTAL CANCER METASTATIC
     Route: 065
     Dates: start: 20121011, end: 20121227
  2. OXALIPLATIN [Suspect]
     Indication: COLORECTAL CANCER METASTATIC
     Route: 042
     Dates: start: 20121011, end: 20121227
  3. LEUCOVORIN [Suspect]
     Indication: COLORECTAL CANCER METASTATIC
     Route: 042
     Dates: start: 20121011, end: 20121227
  4. 5-FLUOROURACIL [Suspect]
     Indication: COLORECTAL CANCER METASTATIC
     Dosage: CONTINUOUS X 46-48 HRS
     Route: 042
     Dates: start: 20121011, end: 20121229

REACTIONS (2)
  - Skin ulcer [Recovered/Resolved with Sequelae]
  - Skin infection [Recovered/Resolved with Sequelae]
